FAERS Safety Report 20103726 (Version 1)
Quarter: 2021Q4

REPORT INFORMATION
  Report Type: Spontaneous
  Country: US (occurrence: None)
  Receive Date: 20211123
  Receipt Date: 20211123
  Transmission Date: 20220303
  Serious: Yes (Other)
  Sender: FDA-Public Use
  Company Number: None

PATIENT
  Age: 44 Year
  Sex: Female

DRUGS (1)
  1. HUMIRA [Suspect]
     Active Substance: ADALIMUMAB
     Indication: Psoriasis
     Dates: start: 20210605, end: 20211027

REACTIONS (2)
  - Mycobacterium tuberculosis complex test positive [None]
  - Therapy interrupted [None]

NARRATIVE: CASE EVENT DATE: 20211027
